FAERS Safety Report 12286659 (Version 2)
Quarter: 2016Q3

REPORT INFORMATION
  Report Type: Spontaneous
  Country: DK (occurrence: DK)
  Receive Date: 20160420
  Receipt Date: 20160728
  Transmission Date: 20161109
  Serious: Yes (Death)
  Sender: FDA-Public Use
  Company Number: DK-ACTAVIS-2011B-03156

PATIENT
  Age: 39 Year
  Sex: Male
  Weight: 97 kg

DRUGS (7)
  1. LYRICA [Suspect]
     Active Substance: PREGABALIN
     Indication: DEPRESSION
     Dosage: UNKNOWN
     Route: 048
     Dates: start: 20101201, end: 20110117
  2. VENLAFAXINE [Concomitant]
     Active Substance: VENLAFAXINE HYDROCHLORIDE
     Indication: PRODUCT USED FOR UNKNOWN INDICATION
  3. LYRICA [Suspect]
     Active Substance: PREGABALIN
     Indication: ANXIETY
  4. DIAZEPAM. [Concomitant]
     Active Substance: DIAZEPAM
     Indication: PRODUCT USED FOR UNKNOWN INDICATION
  5. MORPHINE [Concomitant]
     Active Substance: MORPHINE
     Indication: PRODUCT USED FOR UNKNOWN INDICATION
  6. ALOPAM [Suspect]
     Active Substance: OXAZEPAM
     Indication: PRODUCT USED FOR UNKNOWN INDICATION
     Route: 048
     Dates: start: 2006, end: 201011
  7. ZYPREXA [Suspect]
     Active Substance: OLANZAPINE
     Indication: DEPRESSION SUICIDAL
     Route: 048
     Dates: start: 20101122, end: 20110117

REACTIONS (1)
  - Eosinophilic myocarditis [Fatal]

NARRATIVE: CASE EVENT DATE: 20110117
